FAERS Safety Report 23243698 (Version 1)
Quarter: 2023Q4

REPORT INFORMATION
  Report Type: Report from Study
  Country: FR (occurrence: FR)
  Receive Date: 20231130
  Receipt Date: 20231130
  Transmission Date: 20240110
  Serious: Yes (Other)
  Sender: FDA-Public Use
  Company Number: FR-BRISTOL-MYERS SQUIBB COMPANY-BMS-2018-117907

PATIENT
  Age: 48 Year
  Sex: Male
  Weight: 101 kg

DRUGS (2)
  1. IPILIMUMAB [Suspect]
     Active Substance: IPILIMUMAB
     Indication: Renal cell carcinoma
     Dosage: 40 MILLILITER
     Dates: start: 20180411, end: 20180411
  2. IPILIMUMAB [Suspect]
     Active Substance: IPILIMUMAB
     Dosage: 74 MILLILITER
     Dates: start: 20180411, end: 20180919

REACTIONS (1)
  - Hypophysitis [Recovered/Resolved with Sequelae]

NARRATIVE: CASE EVENT DATE: 20181206
